FAERS Safety Report 7755818-4 (Version None)
Quarter: 2011Q3

REPORT INFORMATION
  Report Type: 
  Country: None (occurrence: None)
  Receive Date: 20110916
  Receipt Date: 20110906
  Transmission Date: 20111222
  Serious: Yes (Hospitalization)
  Sender: FDA-Public Use
  Company Number: AU-CELGENEUS-008-50794-11090390

PATIENT
  Sex: Female
  Weight: 46 kg

DRUGS (6)
  1. PANOBINOSTAT [Suspect]
  2. PANTOPRAZOLE [Concomitant]
     Route: 048
  3. PANOBINOSTAT [Suspect]
     Dosage: 30 MILLIGRAM
     Route: 065
     Dates: start: 20110722
  4. VIDAZA [Suspect]
     Dosage: 75 MICROGRAM/SQ. METER
     Route: 050
     Dates: start: 20110718
  5. VIDAZA [Suspect]
  6. METOCLOPRAMIDE [Concomitant]
     Indication: NAUSEA
     Route: 048

REACTIONS (2)
  - DYSPHAGIA [None]
  - ODYNOPHAGIA [None]
